FAERS Safety Report 14244162 (Version 2)
Quarter: 2017Q4

REPORT INFORMATION
  Report Type: Spontaneous
  Country: US (occurrence: US)
  Receive Date: 20171201
  Receipt Date: 20171228
  Transmission Date: 20180321
  Serious: No
  Sender: FDA-Public Use
  Company Number: US-APOPHARMA USA, INC.-2017AP021157

PATIENT
  Age: 56 Year
  Sex: Male

DRUGS (7)
  1. ACYCLOVIR                          /00587301/ [Concomitant]
     Active Substance: ACYCLOVIR
     Indication: SUPPORTIVE CARE
     Dosage: UNK, UNKNOWN
     Route: 065
  2. ALKERAN [Suspect]
     Active Substance: MELPHALAN
     Indication: STEM CELL TRANSPLANT
     Dosage: 100 MG/M2, QD
     Route: 042
  3. FLUCONAZOLE. [Concomitant]
     Active Substance: FLUCONAZOLE
     Indication: SUPPORTIVE CARE
     Dosage: UNK, UNKNOWN
     Route: 065
  4. ALKERAN [Suspect]
     Active Substance: MELPHALAN
     Indication: PLASMA CELL MYELOMA
  5. PENTAMIDINE [Concomitant]
     Active Substance: PENTAMIDINE
     Indication: SUPPORTIVE CARE
     Dosage: UNK, UNKNOWN
     Route: 045
  6. TRIMETHOPRIM SULFAMETHOXAZOLE [Concomitant]
     Active Substance: SULFAMETHOXAZOLE\TRIMETHOPRIM
     Indication: SUPPORTIVE CARE
     Dosage: UNK, UNKNOWN
     Route: 065
  7. LEVOFLOXACIN. [Concomitant]
     Active Substance: LEVOFLOXACIN
     Indication: SUPPORTIVE CARE
     Dosage: UNK UNK, UNKNOWN
     Route: 065

REACTIONS (1)
  - Mucosal inflammation [Unknown]
